FAERS Safety Report 18423491 (Version 1)
Quarter: 2020Q4

REPORT INFORMATION
  Report Type: Spontaneous
  Country: FR (occurrence: FR)
  Receive Date: 20201023
  Receipt Date: 20201023
  Transmission Date: 20210114
  Serious: Yes (Other)
  Sender: FDA-Public Use
  Company Number: FR-ASTRAZENECA-2020SF38433

PATIENT
  Age: 28086 Day
  Sex: Male

DRUGS (5)
  1. KARDEGIC [Concomitant]
     Active Substance: ASPIRIN DL-LYSINE
     Indication: TENSION
  2. LOXEN [Concomitant]
     Indication: TENSION
     Dosage: 20 MG ONE TABLET IN THE EVENING AND 50 MG AT SLEEP
  3. ATACAND [Suspect]
     Active Substance: CANDESARTAN CILEXETIL
     Indication: HYPERTENSION
     Route: 048
  4. BRILIQUE [Suspect]
     Active Substance: TICAGRELOR
     Indication: CORONARY ARTERY BYPASS
     Route: 048
     Dates: start: 2019, end: 20201018
  5. LASILIX [Concomitant]
     Active Substance: FUROSEMIDE
     Indication: TENSION

REACTIONS (11)
  - Ear haemorrhage [Recovering/Resolving]
  - Contusion [Unknown]
  - Insomnia [Recovering/Resolving]
  - Epistaxis [Recovering/Resolving]
  - Dyspnoea [Recovering/Resolving]
  - Blood potassium increased [Unknown]
  - Product use issue [Unknown]
  - Haemorrhage [Unknown]
  - Blood uric acid increased [Unknown]
  - Pruritus [Unknown]
  - Visual impairment [Unknown]

NARRATIVE: CASE EVENT DATE: 20201018
